FAERS Safety Report 16026527 (Version 1)
Quarter: 2019Q1

REPORT INFORMATION
  Report Type: Spontaneous
  Country: US (occurrence: US)
  Receive Date: 20190302
  Receipt Date: 20190302
  Transmission Date: 20190418
  Serious: Yes (Other)
  Sender: FDA-Public Use
  Company Number: US-TARO-2018TAR00293

PATIENT
  Age: 8 Year
  Sex: Male
  Weight: 34.01 kg

DRUGS (2)
  1. LAMOTRIGINE TABLETS 200 MG [Suspect]
     Active Substance: LAMOTRIGINE
     Indication: GENERALISED ANXIETY DISORDER
     Dosage: 200 MG, 1X/DAY
     Route: 048
     Dates: start: 20180406
  2. LAMOTRIGINE TABLETS 200 MG [Suspect]
     Active Substance: LAMOTRIGINE
     Indication: MAJOR DEPRESSION
     Dosage: 200 MG, 1X/DAY
     Route: 048
     Dates: start: 2017, end: 20180405

REACTIONS (9)
  - Crying [Recovering/Resolving]
  - Abnormal behaviour [Recovering/Resolving]
  - Nervousness [Recovering/Resolving]
  - Drug ineffective for unapproved indication [Recovered/Resolved]
  - Intentional self-injury [Recovering/Resolving]
  - Nightmare [Recovering/Resolving]
  - Anxiety [Recovering/Resolving]
  - Suicidal ideation [Recovering/Resolving]
  - Emotional disorder [Recovering/Resolving]

NARRATIVE: CASE EVENT DATE: 201801
